FAERS Safety Report 9204229 (Version 2)
Quarter: 2013Q2

REPORT INFORMATION
  Report Type: Spontaneous
  Country: US (occurrence: US)
  Receive Date: 20130402
  Receipt Date: 20130612
  Transmission Date: 20140414
  Serious: Yes (Other)
  Sender: FDA-Public Use
  Company Number: US-ELI_LILLY_AND_COMPANY-US201212007880

PATIENT
  Age: 69 Year
  Sex: Female

DRUGS (15)
  1. FORTEO [Suspect]
     Indication: OSTEOPOROSIS
     Dosage: 20 UG, QD
     Route: 065
     Dates: start: 20121115
  2. FORTEO [Suspect]
     Dosage: 20 UG, QD
     Dates: start: 201211
  3. EFFEXOR [Concomitant]
  4. AMITIZA [Concomitant]
  5. AMLODIPINE BESYLATE [Concomitant]
  6. DEXLANSOPRAZOLE [Concomitant]
     Indication: GASTROOESOPHAGEAL REFLUX DISEASE
  7. PRAVASTATIN [Concomitant]
  8. TRIAMTERENE/HCTZ [Concomitant]
  9. HYOSCYAMINE [Concomitant]
     Indication: IRRITABLE BOWEL SYNDROME
  10. VITAMIN D [Concomitant]
     Dosage: 1000 U, QD
  11. NORVASC [Concomitant]
     Dosage: 10 MG, UNK
  12. DEXLANSOPRAZOLE [Concomitant]
     Dosage: 60 MG, UNK
  13. AMBIEN [Concomitant]
  14. XIFAXAN [Concomitant]
     Dosage: UNK
  15. STOOL SOFTENER [Concomitant]

REACTIONS (9)
  - Renal cancer recurrent [Unknown]
  - Injection site bruising [Recovered/Resolved]
  - Body fat disorder [Unknown]
  - Off label use [Unknown]
  - Arthralgia [Unknown]
  - Burning sensation [Unknown]
  - Medial tibial stress syndrome [Unknown]
  - Pain in extremity [Unknown]
  - Vitamin D decreased [Unknown]
